FAERS Safety Report 5181932-6 (Version None)
Quarter: 2006Q4

REPORT INFORMATION
  Report Type: 
  Country: None (occurrence: None)
  Receive Date: 20061220
  Receipt Date: 20060330
  Transmission Date: 20070319
  Serious: No
  Sender: FDA-Public Use
  Company Number: US-GLAXOSMITHKLINE-A0599837A

PATIENT
  Age: 60 Year
  Sex: Female

DRUGS (2)
  1. COMMIT [Suspect]
     Dates: start: 20051230
  2. COMMIT [Suspect]
     Dates: start: 20051230

REACTIONS (4)
  - FLUID RETENTION [None]
  - INTENTIONAL DRUG MISUSE [None]
  - MICTURITION FREQUENCY DECREASED [None]
  - WEIGHT LOSS POOR [None]
